FAERS Safety Report 13419998 (Version 1)
Quarter: 2017Q2

REPORT INFORMATION
  Report Type: Spontaneous
  Country: US (occurrence: US)
  Receive Date: 20170407
  Receipt Date: 20170407
  Transmission Date: 20170830
  Serious: No
  Sender: FDA-Public Use
  Company Number: US-JNJFOC-20170300230

PATIENT
  Sex: Female

DRUGS (1)
  1. STELARA [Suspect]
     Active Substance: USTEKINUMAB
     Indication: PRODUCT USED FOR UNKNOWN INDICATION
     Route: 058

REACTIONS (7)
  - Hypokinesia [Unknown]
  - Anxiety [Unknown]
  - Weight decreased [Unknown]
  - Pain [Unknown]
  - Depression [Unknown]
  - Thermal burn [Unknown]
  - Decreased appetite [Unknown]
